FAERS Safety Report 11149355 (Version 1)
Quarter: 2015Q2

REPORT INFORMATION
  Report Type: Spontaneous
  Country: US (occurrence: None)
  Receive Date: 20150528
  Receipt Date: 20150528
  Transmission Date: 20150821
  Serious: Yes (Other)
  Sender: FDA-Public Use
  Company Number: None

PATIENT
  Age: 57 Year
  Sex: Male

DRUGS (1)
  1. PRILOSEC [Suspect]
     Active Substance: OMEPRAZOLE MAGNESIUM
     Indication: DYSPEPSIA
     Dates: start: 20130730, end: 20131028

REACTIONS (4)
  - Dyspnoea [None]
  - Vision blurred [None]
  - Nipple pain [None]
  - Gynaecomastia [None]

NARRATIVE: CASE EVENT DATE: 20130730
